FAERS Safety Report 25192230 (Version 1)
Quarter: 2025Q2

REPORT INFORMATION
  Report Type: Spontaneous
  Country: US (occurrence: US)
  Receive Date: 20250414
  Receipt Date: 20250414
  Transmission Date: 20250716
  Serious: No
  Sender: MYLAN
  Company Number: US-MYLANLABS-2025M1029289

PATIENT
  Sex: Female

DRUGS (1)
  1. ESTRADIOL TRANSDERMAL SYSTEM [Suspect]
     Active Substance: ESTRADIOL
     Indication: Product used for unknown indication
     Dosage: 0.1 MILLIGRAM, QD (TWICE WEEKLY)
     Dates: start: 202401

REACTIONS (4)
  - Skin irritation [Unknown]
  - Skin reaction [Unknown]
  - Inflammation [Unknown]
  - Urticaria [Unknown]

NARRATIVE: CASE EVENT DATE: 20250314
